FAERS Safety Report 4786174-1 (Version None)
Quarter: 2005Q3

REPORT INFORMATION
  Report Type: 
  Country: None (occurrence: None)
  Receive Date: 20050930
  Receipt Date: 20050914
  Transmission Date: 20060218
  Serious: Yes (Other)
  Sender: FDA-Public Use
  Company Number: M-05-335

PATIENT
  Sex: Male
  Weight: 83.9154 kg

DRUGS (10)
  1. PACERONE [Suspect]
     Indication: VENTRICULAR FIBRILLATION
     Dosage: SEE IMAGE
     Route: 048
     Dates: start: 20010101, end: 20050101
  2. PACERONE [Suspect]
     Indication: VENTRICULAR FIBRILLATION
     Dosage: SEE IMAGE
     Route: 048
     Dates: start: 20050101, end: 20050301
  3. ... [Suspect]
  4. COUMADIN [Concomitant]
  5. ALDACTONE [Concomitant]
  6. LASIX [Concomitant]
  7. COREG [Concomitant]
  8. AMBIEN [Concomitant]
  9. LOTENSIN [Concomitant]
  10. ATIVAN [Concomitant]

REACTIONS (11)
  - BALANCE DISORDER [None]
  - COMPLEX PARTIAL SEIZURES [None]
  - CORNEAL DEPOSITS [None]
  - DIPLOPIA [None]
  - DYSGEUSIA [None]
  - FATIGUE [None]
  - GALLBLADDER DISORDER [None]
  - MUSCULAR WEAKNESS [None]
  - NEUROPATHY PERIPHERAL [None]
  - NODULE [None]
  - TINNITUS [None]
